FAERS Safety Report 11938211 (Version 1)
Quarter: 2016Q1

REPORT INFORMATION
  Report Type: Spontaneous
  Country: FR (occurrence: FR)
  Receive Date: 20160122
  Receipt Date: 20160122
  Transmission Date: 20160526
  Serious: Yes (Hospitalization)
  Sender: FDA-Public Use
  Company Number: FR-ASTRAZENECA-2016SE05522

PATIENT
  Age: 949 Month
  Sex: Female

DRUGS (10)
  1. ALPRAZOLAM. [Concomitant]
     Active Substance: ALPRAZOLAM
  2. STILNOX [Concomitant]
     Active Substance: ZOLPIDEM TARTRATE
  3. PARACETAMOL [Concomitant]
     Active Substance: ACETAMINOPHEN
  4. CELIPROLOL [Concomitant]
     Active Substance: CELIPROLOL
  5. CRESTOR [Suspect]
     Active Substance: ROSUVASTATIN CALCIUM
     Indication: HYPERCHOLESTEROLAEMIA
     Route: 048
     Dates: end: 201507
  6. KARDEGIC [Concomitant]
     Active Substance: ASPIRIN LYSINE
  7. AMLOR [Concomitant]
     Active Substance: AMLODIPINE BESYLATE
  8. DIAMOX SEQUELS [Concomitant]
     Active Substance: ACETAZOLAMIDE
  9. OMEPRAZOLE. [Concomitant]
     Active Substance: OMEPRAZOLE
  10. IXPRIM [Concomitant]
     Active Substance: ACETAMINOPHEN\TRAMADOL HYDROCHLORIDE

REACTIONS (1)
  - Subacute cutaneous lupus erythematosus [Recovered/Resolved]

NARRATIVE: CASE EVENT DATE: 201504
